FAERS Safety Report 12384204 (Version 1)
Quarter: 2016Q2

REPORT INFORMATION
  Report Type: Spontaneous
  Country: US (occurrence: None)
  Receive Date: 20160518
  Receipt Date: 20160518
  Transmission Date: 20160815
  Serious: No
  Sender: FDA-Public Use
  Company Number: None

PATIENT
  Sex: Male

DRUGS (3)
  1. GLYBURIDE. [Suspect]
     Active Substance: GLYBURIDE
  2. ACARBOSE. [Suspect]
     Active Substance: ACARBOSE
  3. LINAGLIPTIN [Suspect]
     Active Substance: LINAGLIPTIN

REACTIONS (1)
  - Asthenia [None]
